FAERS Safety Report 7524954-X (Version None)
Quarter: 2011Q2

REPORT INFORMATION
  Report Type: 
  Country: None (occurrence: None)
  Receive Date: 20110606
  Receipt Date: 20110523
  Transmission Date: 20111010
  Serious: Yes (Other)
  Sender: FDA-Public Use
  Company Number: US-ELI_LILLY_AND_COMPANY-US201105007020

PATIENT
  Age: 48 Year
  Sex: Female
  Weight: 68.027 kg

DRUGS (5)
  1. LYRICA [Concomitant]
     Dosage: 100 MG, EVERY 8 HRS
     Route: 048
     Dates: start: 20110512
  2. XANAX                                   /USA/ [Concomitant]
     Dosage: UNK
  3. CYMBALTA [Suspect]
     Dosage: UNK, UNKNOWN
  4. LYRICA [Concomitant]
     Indication: FIBROMYALGIA
     Dosage: 100 MG, QID
     Route: 048
     Dates: start: 20050101
  5. LAMICTAL [Concomitant]
     Indication: BIPOLAR DISORDER
     Dosage: UNK

REACTIONS (5)
  - INTERVERTEBRAL DISC OPERATION [None]
  - PAIN [None]
  - DRUG INEFFECTIVE [None]
  - HYPOAESTHESIA [None]
  - MALAISE [None]
